FAERS Safety Report 7488522-0 (Version None)
Quarter: 2011Q2

REPORT INFORMATION
  Report Type: 
  Country: None (occurrence: None)
  Receive Date: 20110518
  Receipt Date: 20110509
  Transmission Date: 20111010
  Serious: Yes (Life-Threatening, Hospitalization)
  Sender: FDA-Public Use
  Company Number: JP-MERCK-1105USA01236

PATIENT
  Age: 69 Year
  Sex: Female

DRUGS (6)
  1. PREDNISOLONE [Concomitant]
     Indication: ASTHMA
     Dosage: DOSING FREQUENCY UNKNOWN, SINGLE DOSE
     Route: 048
     Dates: start: 20060417, end: 20060509
  2. GASLON [Concomitant]
     Dosage: DAILY DOSAGE UNKNONW
     Route: 048
     Dates: start: 20060417, end: 20060501
  3. CODEINE [Concomitant]
     Indication: ASTHMA
     Dosage: DAILY DOSAGE UNKNOWN
     Route: 048
     Dates: start: 20060424, end: 20060430
  4. MAGNESIUM SULFATE [Concomitant]
     Dosage: DAILY DOSE UNKNOWN
     Route: 065
     Dates: start: 20060424, end: 20060501
  5. NOVAMIN (PROCHLORPERAZINE MESYLATE) [Concomitant]
     Dosage: DAILY DOSAGE UNKNOWN
     Route: 048
     Dates: start: 20060424, end: 20060501
  6. SINGULAIR [Suspect]
     Indication: ASTHMA
     Dosage: DOSING/FRENQUENCY UNKNOWN
     Route: 048
     Dates: start: 20060414, end: 20060510

REACTIONS (1)
  - TOXIC EPIDERMAL NECROLYSIS [None]
